FAERS Safety Report 24067456 (Version 3)
Quarter: 2024Q3

REPORT INFORMATION
  Report Type: Spontaneous
  Country: US (occurrence: US)
  Receive Date: 20240709
  Receipt Date: 20240722
  Transmission Date: 20241016
  Serious: No
  Sender: AMGEN
  Company Number: US-AMGEN-USASP2024134250

PATIENT
  Age: 62 Year
  Sex: Female

DRUGS (2)
  1. REPATHA [Suspect]
     Active Substance: EVOLOCUMAB
     Indication: Type IIa hyperlipidaemia
     Dosage: 140 MILLIGRAM, Q2WK (EVERY TWO WEEKS)
     Route: 065
     Dates: start: 202405
  2. REPATHA [Suspect]
     Active Substance: EVOLOCUMAB
     Indication: Low density lipoprotein abnormal

REACTIONS (10)
  - Blood potassium increased [Unknown]
  - Pain [Recovered/Resolved]
  - Blood creatinine increased [Unknown]
  - Malaise [Recovered/Resolved]
  - Injection site pain [Unknown]
  - Injury associated with device [Unknown]
  - Injection site swelling [Unknown]
  - Headache [Recovered/Resolved]
  - Wrong technique in product usage process [Unknown]
  - Product communication issue [Unknown]

NARRATIVE: CASE EVENT DATE: 20240601
